FAERS Safety Report 20112514 (Version 3)
Quarter: 2023Q1

REPORT INFORMATION
  Report Type: Spontaneous
  Country: US (occurrence: US)
  Receive Date: 20211125
  Receipt Date: 20230323
  Transmission Date: 20230418
  Serious: Yes (Other)
  Sender: FDA-Public Use
  Company Number: US-BTGSP-US-BTGSP-21-0094

PATIENT
  Age: 54 Year
  Sex: Male
  Weight: 86.6 kg

DRUGS (2)
  1. CROFAB [Suspect]
     Active Substance: CROTALIDAE POLYVALENT IMMUNE FAB (OVINE)
     Indication: Snake bite
     Dosage: 6 VIALS, INITIAL CONTROL
     Route: 065
     Dates: start: 20210719, end: 20210719
  2. ANAVIP [Suspect]
     Active Substance: PIT VIPER (CROTALINAE) IMMUNE GLOBULIN ANTIVENIN (EQUINE)
     Indication: Snake bite
     Dosage: UNK
     Route: 065

REACTIONS (10)
  - Kounis syndrome [Recovered/Resolved]
  - Supraventricular tachycardia [Unknown]
  - Cardiac failure [Recovered/Resolved]
  - Acute kidney injury [Unknown]
  - Liver injury [Unknown]
  - Anaphylactic reaction [Unknown]
  - Discomfort [Unknown]
  - Patient uncooperative [Unknown]
  - Pruritus [Unknown]
  - Therapy change [Unknown]

NARRATIVE: CASE EVENT DATE: 20190719
